FAERS Safety Report 15803057 (Version 1)
Quarter: 2019Q1

REPORT INFORMATION
  Report Type: Spontaneous
  Country: US (occurrence: US)
  Receive Date: 20190109
  Receipt Date: 20190109
  Transmission Date: 20190417
  Serious: Yes (Hospitalization)
  Sender: FDA-Public Use
  Company Number: None

PATIENT
  Sex: Female

DRUGS (19)
  1. MAGNESIUM [Concomitant]
     Active Substance: MAGNESIUM
  2. PANTOPRAZOLE [Concomitant]
     Active Substance: PANTOPRAZOLE
  3. REGLAN [Concomitant]
     Active Substance: METOCLOPRAMIDE HYDROCHLORIDE
  4. FAMOTIDINE. [Concomitant]
     Active Substance: FAMOTIDINE
  5. ACYCLOVIR. [Concomitant]
     Active Substance: ACYCLOVIR
  6. VITAMIN B1 [Concomitant]
     Active Substance: THIAMINE HYDROCHLORIDE
  7. ZOLOFT [Concomitant]
     Active Substance: SERTRALINE HYDROCHLORIDE
  8. SMZ-TMP [Concomitant]
     Active Substance: SULFAMETHOXAZOLE\TRIMETHOPRIM
  9. MULTIVITAMIN [Concomitant]
     Active Substance: VITAMINS
  10. METFORMIN [Concomitant]
     Active Substance: METFORMIN HYDROCHLORIDE
  11. ZORTRESS [Suspect]
     Active Substance: EVEROLIMUS
     Indication: OSTEOPOROSIS
     Route: 048
     Dates: start: 20170930
  12. PREDNISONE. [Concomitant]
     Active Substance: PREDNISONE
  13. MUCINEX [Concomitant]
     Active Substance: GUAIFENESIN
  14. ONDANSETRON [Concomitant]
     Active Substance: ONDANSETRON
  15. ARANESP [Concomitant]
     Active Substance: DARBEPOETIN ALFA
  16. ELIQUIS [Concomitant]
     Active Substance: APIXABAN
  17. TACROLIMUS. [Concomitant]
     Active Substance: TACROLIMUS
  18. FERROUS GLUC [Concomitant]
  19. MIRTAZAPINE. [Concomitant]
     Active Substance: MIRTAZAPINE

REACTIONS (1)
  - Pneumonia [None]
